FAERS Safety Report 17854277 (Version 1)
Quarter: 2020Q2

REPORT INFORMATION
  Report Type: Report from Study
  Country: GB (occurrence: GB)
  Receive Date: 20200603
  Receipt Date: 20200603
  Transmission Date: 20200714
  Serious: Yes (Death)
  Sender: FDA-Public Use
  Company Number: GB-ACCORD-183865

PATIENT
  Age: 46 Year
  Sex: Male

DRUGS (4)
  1. CICLOSPORIN [Suspect]
     Active Substance: CYCLOSPORINE
     Indication: IMMUNOSUPPRESSION
     Dosage: 4-8 MG/KG/D IN TWO DIVIDED DOSES
     Route: 065
  2. GANCICLOVIR. [Suspect]
     Active Substance: GANCICLOVIR
     Indication: CYTOMEGALOVIRUS INFECTION
     Dosage: INTRAVENOUS GCV (5 MG/KG B.I.D)
     Route: 042
  3. MYCOPHENOLIC ACID. [Suspect]
     Active Substance: MYCOPHENOLIC ACID
     Indication: IMMUNOSUPPRESSION
     Dosage: 750 1000 MG B.I.D.
     Route: 048
  4. CYTOTECT CP [Suspect]
     Active Substance: HUMAN CYTOMEGALOVIRUS IMMUNE GLOBULIN
     Indication: CYTOMEGALOVIRUS INFECTION
     Dosage: 2-3 ML/KG,  EXPRESSED IN LOG10 COPIES/ML: 4.6-5.2: WEEKLY
     Route: 065

REACTIONS (1)
  - Pneumonia cytomegaloviral [Fatal]
